FAERS Safety Report 4512300-5 (Version None)
Quarter: 2004Q4

REPORT INFORMATION
  Report Type: 
  Country: None (occurrence: None)
  Receive Date: 20041123
  Receipt Date: 20041117
  Transmission Date: 20050328
  Serious: Yes (Life-Threatening, Hospitalization)
  Sender: FDA-Public Use
  Company Number: 2004PK01948

PATIENT
  Age: 38 Year
  Sex: Male

DRUGS (1)
  1. ASCO TOP [Suspect]
     Indication: HEADACHE

REACTIONS (3)
  - CEREBRAL HAEMORRHAGE [None]
  - COMA [None]
  - SELF-MEDICATION [None]
